FAERS Safety Report 9166394 (Version 1)
Quarter: 2013Q1

REPORT INFORMATION
  Report Type: Spontaneous
  Country: CA (occurrence: CA)
  Receive Date: 20130315
  Receipt Date: 20130315
  Transmission Date: 20140127
  Serious: Yes (Other)
  Sender: FDA-Public Use
  Company Number: CA-BAYER-2013-028945

PATIENT
  Sex: 0
  Weight: 1.8 kg

DRUGS (4)
  1. NIFEDIPINE [Suspect]
     Dosage: UNK
     Route: 064
  2. CALCIUM CARBONATE [Suspect]
     Route: 064
  3. CALCITROL [Suspect]
     Route: 064
  4. FERROUS FUMARATE [Suspect]
     Route: 064

REACTIONS (2)
  - Premature baby [None]
  - Low birth weight baby [None]
